FAERS Safety Report 8449363-0 (Version None)
Quarter: 2012Q2

REPORT INFORMATION
  Report Type: 
  Country: None (occurrence: None)
  Receive Date: 20120619
  Receipt Date: 20120613
  Transmission Date: 20120825
  Serious: Yes (Other)
  Sender: FDA-Public Use
  Company Number: FR-ROCHE-1079512

PATIENT
  Sex: Female

DRUGS (2)
  1. XOLAIR [Suspect]
     Dosage: SECOND OR THIRD INJECTION
     Route: 058
     Dates: start: 20120516
  2. XOLAIR [Suspect]
     Indication: ASTHMA
     Route: 058
     Dates: start: 20120401

REACTIONS (5)
  - ERYTHEMA [None]
  - SWELLING FACE [None]
  - HEADACHE [None]
  - HYPERSENSITIVITY [None]
  - HYPOAESTHESIA ORAL [None]
